FAERS Safety Report 8457754-7 (Version None)
Quarter: 2012Q2

REPORT INFORMATION
  Report Type: 
  Country: None (occurrence: None)
  Receive Date: 20120618
  Receipt Date: 20120618
  Transmission Date: 20120825
  Serious: No
  Sender: FDA-Public Use
  Company Number: None

PATIENT
  Age: 7 Year
  Sex: Male
  Weight: 24.9478 kg

DRUGS (1)
  1. LEVOCETIRIZINE DIHYDROCHLORIDE [Suspect]
     Indication: SEASONAL ALLERGY
     Dosage: 1/2 TABLET AT BEDTIME DAILY PO
     Route: 048
     Dates: start: 20120301, end: 20120613

REACTIONS (2)
  - MYALGIA [None]
  - PAIN IN EXTREMITY [None]
